FAERS Safety Report 7757549-3 (Version None)
Quarter: 2011Q3

REPORT INFORMATION
  Report Type: 
  Country: None (occurrence: None)
  Receive Date: 20110916
  Receipt Date: 20110915
  Transmission Date: 20111222
  Serious: Yes (Other)
  Sender: FDA-Public Use
  Company Number: US-PFIZER INC-2011219162

PATIENT
  Sex: Male
  Weight: 90.7 kg

DRUGS (2)
  1. DEPO-MEDROL [Suspect]
     Indication: PAIN OF SKIN
     Dosage: 20 MG, UNK
     Dates: start: 20100804
  2. CELEXA [Suspect]
     Indication: DEPRESSION
     Dosage: 20 MG, DAILY
     Route: 048
     Dates: start: 20100901, end: 20101001

REACTIONS (17)
  - SOFT TISSUE ATROPHY [None]
  - IRRITABILITY [None]
  - AGGRESSION [None]
  - HOSTILITY [None]
  - ERECTILE DYSFUNCTION [None]
  - LIPOATROPHY [None]
  - MUSCLE ATROPHY [None]
  - DIARRHOEA [None]
  - ANGER [None]
  - WEIGHT DECREASED [None]
  - WEIGHT INCREASED [None]
  - SKIN ATROPHY [None]
  - DEPRESSION [None]
  - MOOD ALTERED [None]
  - BLOOD CREATINE PHOSPHOKINASE INCREASED [None]
  - DRUG INEFFECTIVE [None]
  - ALOPECIA [None]
